FAERS Safety Report 20316704 (Version 2)
Quarter: 2022Q1

REPORT INFORMATION
  Report Type: Spontaneous
  Country: US (occurrence: US)
  Receive Date: 20220110
  Receipt Date: 20220129
  Transmission Date: 20220423
  Serious: Yes (Other)
  Sender: FDA-Public Use
  Company Number: US-NOVARTISPH-NVSC2022US002002

PATIENT
  Sex: Male

DRUGS (2)
  1. RECLAST [Suspect]
     Active Substance: ZOLEDRONIC ACID
     Indication: Product used for unknown indication
     Dosage: UNK
     Route: 065
  2. RECLAST [Suspect]
     Active Substance: ZOLEDRONIC ACID
     Dosage: UNK
     Route: 065

REACTIONS (9)
  - Immunodeficiency [Unknown]
  - Multiple fractures [Unknown]
  - Osteonecrosis of jaw [Unknown]
  - Tooth injury [Unknown]
  - Spinal disorder [Unknown]
  - Ill-defined disorder [Unknown]
  - Confusional state [Unknown]
  - Neck injury [Unknown]
  - Product dose omission issue [Unknown]
